FAERS Safety Report 9981923 (Version 1)
Quarter: 2014Q1

REPORT INFORMATION
  Report Type: Report from Study
  Country: US (occurrence: US)
  Receive Date: 20140307
  Receipt Date: 20140307
  Transmission Date: 20141002
  Serious: No
  Sender: FDA-Public Use
  Company Number: US-ABBVIE-13P-163-1177863-00

PATIENT
  Age: 57 Year
  Sex: Female

DRUGS (3)
  1. HUMIRA [Suspect]
     Indication: PSORIASIS
     Dosage: ONE DOSE
     Dates: start: 20131209, end: 20131209
  2. TRIAMCINOLONE [Concomitant]
     Indication: PSORIASIS
     Route: 061
  3. METROGEL [Concomitant]
     Indication: PSORIASIS
     Route: 061

REACTIONS (1)
  - Injection site pain [Recovered/Resolved]
